FAERS Safety Report 8335830-7 (Version None)
Quarter: 2012Q2

REPORT INFORMATION
  Report Type: 
  Country: None (occurrence: None)
  Receive Date: 20120501
  Receipt Date: 20120501
  Transmission Date: 20120825
  Serious: Yes (Hospitalization)
  Sender: FDA-Public Use
  Company Number: None

PATIENT
  Age: 55 Year
  Sex: Male
  Weight: 88.6 kg

DRUGS (5)
  1. ASPIRIN [Suspect]
     Indication: CARDIOVASCULAR EVENT PROPHYLAXIS
     Dosage: 81MG QDAY PO CHRONIC
     Route: 048
  2. LISINOPRIL AND HYDROCHLOROTHIAZIDE [Concomitant]
  3. LIPITOR [Concomitant]
  4. CIALIS [Concomitant]
  5. IBUPROFEN TABLETS [Suspect]
     Indication: PAIN
     Dosage: PRN PO CHRONIC
     Route: 048

REACTIONS (2)
  - MELAENA [None]
  - COLONIC POLYP [None]
